FAERS Safety Report 8570452 (Version 2)
Quarter: 2012Q4

REPORT INFORMATION
  Report Type: 
  Country: DE (occurrence: DE)
  Receive Date: 20120521
  Receipt Date: 20120903
  Transmission Date: 20130627
  Serious: Yes (Hospitalization, Other)
  Sender: FDA-Public Use
  Company Number: PHHY2012DE042636

PATIENT
  Age: 69 Year
  Sex: Female
  Weight: 79 kg

DRUGS (2)
  1. ZOMETA [Suspect]
     Indication: METASTASES TO BONE
     Dosage: 4 mg / 5 ml, every 4 weeks
     Route: 042
     Dates: start: 201007, end: 20120515
  2. TRASTUZUMAB [Concomitant]
     Indication: METASTASES TO BONE
     Dosage: 2 mg/kg, per week

REACTIONS (3)
  - Osteonecrosis of jaw [Recovered/Resolved]
  - Pain in jaw [Recovered/Resolved]
  - Oral mucosal erythema [Recovered/Resolved]
